FAERS Safety Report 8185387-9 (Version None)
Quarter: 2012Q1

REPORT INFORMATION
  Report Type: 
  Country: None (occurrence: None)
  Receive Date: 20120305
  Receipt Date: 20120223
  Transmission Date: 20120608
  Serious: Yes (Hospitalization)
  Sender: FDA-Public Use
  Company Number: FR-ASTRAZENECA-2012SE13281

PATIENT
  Sex: Female

DRUGS (6)
  1. EPIRUBICIN [Suspect]
     Indication: BREAST CANCER
     Route: 065
  2. CYCLOPHOSPHAMIDE [Suspect]
     Indication: BREAST CANCER
     Route: 065
  3. ARIMIDEX [Suspect]
     Indication: BREAST CANCER
     Route: 048
  4. TAMOXIFEN BASE [Suspect]
     Indication: BREAST CANCER
     Route: 048
  5. FLUOROURACIL [Suspect]
     Indication: BREAST CANCER
     Route: 065
  6. AROMASIN [Suspect]
     Indication: BREAST CANCER
     Route: 065
     Dates: end: 20101001

REACTIONS (1)
  - PULMONARY HYPERTENSION [None]
